FAERS Safety Report 20992478 (Version 1)
Quarter: 2022Q2

REPORT INFORMATION
  Report Type: Spontaneous
  Country: US (occurrence: US)
  Receive Date: 20220622
  Receipt Date: 20220622
  Transmission Date: 20220721
  Serious: No
  Sender: FDA-Public Use
  Company Number: US-PFIZER INC-202200855657

PATIENT
  Age: 27 Year
  Sex: Female

DRUGS (1)
  1. ESTRADIOL CYPIONATE [Suspect]
     Active Substance: ESTRADIOL CYPIONATE
     Indication: Hormone level abnormal
     Dosage: 2.5 ML(5MG/5ML VIAL; TWICE A MONTH, 2.5ML EACH TIME, 1 VIAL LASTS A MONTH )
     Route: 048

REACTIONS (2)
  - Illness [Unknown]
  - Drug ineffective [Unknown]
